FAERS Safety Report 6674666-X (Version None)
Quarter: 2010Q2

REPORT INFORMATION
  Report Type: 
  Country: None (occurrence: None)
  Receive Date: 20100409
  Receipt Date: 20090227
  Transmission Date: 20101027
  Serious: Yes (Other)
  Sender: FDA-Public Use
  Company Number: NO-PFIZER INC-2009177820

PATIENT
  Age: 64 Year
  Sex: Female

DRUGS (37)
  1. DOXORUBICIN HCL [Suspect]
     Indication: LEIOMYOSARCOMA
     Dosage: 120 MG
     Route: 065
     Dates: start: 20081229, end: 20081229
  2. DOXORUBICIN HCL [Suspect]
     Route: 065
  3. DOXORUBICIN HCL [Suspect]
  4. CISPLATIN [Suspect]
     Indication: LEIOMYOSARCOMA
     Route: 065
  5. BLEOMYCIN SULFATE [Suspect]
     Indication: LEIOMYOSARCOMA
     Route: 065
  6. IFOSFAMIDE [Suspect]
     Indication: LEIOMYOSARCOMA
     Route: 065
     Dates: start: 20081210, end: 20081210
  7. IFOSFAMIDE [Suspect]
     Dosage: 7400 MG
     Route: 065
     Dates: start: 20081210, end: 20081210
  8. IFOSFAMIDE [Suspect]
     Route: 065
     Dates: start: 20081229, end: 20081229
  9. IFOSFAMIDE [Suspect]
     Route: 065
     Dates: start: 20081229, end: 20081229
  10. IFOSFAMIDE [Suspect]
     Route: 065
     Dates: start: 20081229, end: 20081229
  11. IFOSFAMIDE [Suspect]
     Route: 065
  12. IFOSFAMIDE [Suspect]
     Dosage: 7400 MG
     Route: 065
     Dates: start: 20081210, end: 20081210
  13. MESNA [Suspect]
     Indication: LEIOMYOSARCOMA
     Route: 065
  14. MESNA [Suspect]
     Route: 065
     Dates: start: 20081229, end: 20081229
  15. PHENERGAN [Concomitant]
     Dates: start: 20081228, end: 20081231
  16. PHENERGAN [Concomitant]
  17. ATROVENT [Concomitant]
     Dates: start: 20081228, end: 20081231
  18. ATROVENT [Concomitant]
     Dates: start: 20081228, end: 20081231
  19. NEULASTA [Concomitant]
     Dosage: 6 MG
     Route: 058
     Dates: start: 20081231, end: 20081231
  20. PARACET [Concomitant]
     Dates: start: 20081228, end: 20081231
  21. EMEND [Concomitant]
     Dates: start: 20081229, end: 20081231
  22. DIAZEPAM [Concomitant]
     Dosage: 5 MG, UNK
     Dates: start: 20081228, end: 20081231
  23. SIMVASTATIN [Concomitant]
     Dates: start: 20081228, end: 20081231
  24. LACTULOSE [Concomitant]
     Dates: start: 20081228, end: 20081231
  25. LEVOTHYROXINE SODIUM [Concomitant]
     Dates: start: 20081228, end: 20081231
  26. PROCHLORPERAZINE [Concomitant]
     Indication: NAUSEA
     Dates: start: 20081228, end: 20081231
  27. KALEORID [Concomitant]
     Dates: start: 20081228, end: 20081231
  28. OXYCODONE HCL [Concomitant]
     Dates: start: 20081228, end: 20081231
  29. AFIPRAN [Concomitant]
     Dates: start: 20081228, end: 20081231
  30. DEXAMETHASONE [Concomitant]
     Dosage: 8MG X 2
     Dates: start: 20081229, end: 20081230
  31. SCOPODERM [Concomitant]
     Dates: start: 20081228, end: 20081231
  32. OXYCONTIN [Concomitant]
     Dates: start: 20081228, end: 20081231
  33. COAPROVEL [Concomitant]
     Dates: start: 20081228, end: 20081231
  34. SOMAC [Concomitant]
     Dates: start: 20081228, end: 20081231
  35. ZOFRAN [Concomitant]
     Dosage: 8MG X 2
     Dates: start: 20081229, end: 20090101
  36. SYMBICORT [Concomitant]
     Dates: start: 20081228, end: 20081231
  37. KLIOGEST [Concomitant]
     Dates: start: 20081228, end: 20081231

REACTIONS (1)
  - ENCEPHALOPATHY [None]
